FAERS Safety Report 4557533-7 (Version None)
Quarter: 2005Q1

REPORT INFORMATION
  Report Type: 
  Country: None (occurrence: None)
  Receive Date: 20050103
  Receipt Date: 20041008
  Transmission Date: 20050727
  Serious: Yes (Other)
  Sender: FDA-Public Use
  Company Number: 2004UW18469

PATIENT
  Age: 57 Year
  Sex: Female
  Weight: 95.709 kg

DRUGS (5)
  1. CRESTOR [Suspect]
     Indication: BLOOD CHOLESTEROL INCREASED
     Dates: start: 20040818, end: 20040902
  2. CRESTOR [Suspect]
     Indication: HYPERLIPIDAEMIA
     Dates: start: 20040818, end: 20040902
  3. GLUCOTROL [Concomitant]
  4. WELLBUTRIN [Concomitant]
  5. GLUCOPHAGE [Concomitant]

REACTIONS (5)
  - FEELING HOT [None]
  - FLUSHING [None]
  - PRURITUS [None]
  - RASH [None]
  - SKIN BURNING SENSATION [None]
